FAERS Safety Report 10590156 (Version 1)
Quarter: 2014Q4

REPORT INFORMATION
  Report Type: Spontaneous
  Country: US (occurrence: None)
  Receive Date: 20141117
  Receipt Date: 20141117
  Transmission Date: 20150529
  Serious: No
  Sender: FDA-Public Use
  Company Number: None

PATIENT
  Age: 10 Month
  Sex: Male
  Weight: 9.75 kg

DRUGS (1)
  1. AZITHROMYCIN [Suspect]
     Active Substance: AZITHROMYCIN ANHYDROUS
     Indication: EAR INFECTION
     Dosage: 1/2 TEASPOON THEN 1/4 TEASPOON
     Route: 048
     Dates: start: 20141113, end: 20141114

REACTIONS (7)
  - Ear infection [None]
  - Screaming [None]
  - Pyrexia [None]
  - Urticaria [None]
  - Abnormal behaviour [None]
  - Decreased appetite [None]
  - Vomiting [None]

NARRATIVE: CASE EVENT DATE: 20141114
